FAERS Safety Report 8502024-1 (Version None)
Quarter: 2012Q2

REPORT INFORMATION
  Report Type: 
  Country: None (occurrence: None)
  Receive Date: 20120405
  Receipt Date: 20110413
  Transmission Date: 20120825
  Serious: Yes (Other)
  Sender: FDA-Public Use
  Company Number: PHHY2011US31534

PATIENT
  Age: 70 Year
  Sex: Female

DRUGS (9)
  1. MULTIVITAMINS (ASCORBIC ACID, ERGOCALCIFEROL, FOLIC ACID, NICOTINAMIDE [Concomitant]
  2. ADVAIR HFA [Concomitant]
  3. VITAMIN D [Concomitant]
  4. ASPIRIN [Concomitant]
  5. RECLAST [Suspect]
     Dosage: 5 MG, INTRAVENOUS; 5 MG, INTRAVENOUS
     Route: 042
     Dates: start: 20090101
  6. RECLAST [Suspect]
     Dosage: 5 MG, INTRAVENOUS; 5 MG, INTRAVENOUS
     Route: 042
     Dates: start: 20110101
  7. PROAIR HFA (SALBUTAMOL SULFATE) [Concomitant]
  8. CALCIUM [Concomitant]
  9. SPIRIVA [Concomitant]

REACTIONS (4)
  - PARAESTHESIA [None]
  - FEELING COLD [None]
  - FEELING HOT [None]
  - HYPOAESTHESIA [None]
